FAERS Safety Report 11432050 (Version 1)
Quarter: 2015Q3

REPORT INFORMATION
  Report Type: Spontaneous
  Country: US (occurrence: US)
  Receive Date: 20150828
  Receipt Date: 20150828
  Transmission Date: 20151125
  Serious: No
  Sender: FDA-Public Use
  Company Number: US-PFIZER INC-2015283322

PATIENT
  Sex: Female

DRUGS (2)
  1. VIAGRA [Suspect]
     Active Substance: SILDENAFIL CITRATE
     Indication: ENDOMETRIAL DISORDER
     Dosage: 25 MG, 1 SUPPOSITORY DAILY
     Route: 067
     Dates: start: 20140828
  2. VIAGRA [Suspect]
     Active Substance: SILDENAFIL CITRATE
     Indication: IN VITRO FERTILISATION

REACTIONS (3)
  - Off label use [Unknown]
  - Therapeutic response unexpected [Unknown]
  - Endometrial thickening [Unknown]
